FAERS Safety Report 4714672-5 (Version None)
Quarter: 2005Q3

REPORT INFORMATION
  Report Type: 
  Country: None (occurrence: None)
  Receive Date: 20050715
  Receipt Date: 20050519
  Transmission Date: 20060218
  Serious: Yes (Hospitalization)
  Sender: FDA-Public Use
  Company Number: BR-ABBOTT-05P-020-0300861-00

PATIENT
  Sex: Male
  Weight: 48 kg

DRUGS (17)
  1. RITONAVIR SOFT GELATIN CAPSULES [Suspect]
     Indication: HIV INFECTION
     Route: 048
     Dates: start: 20050322
  2. TMC114 [Concomitant]
     Indication: HIV INFECTION
     Route: 048
     Dates: start: 20050322
  3. LAMIVUDINE [Concomitant]
     Indication: HIV INFECTION
     Dates: start: 20040301
  4. TENOFOVIR [Concomitant]
     Indication: HIV INFECTION
     Dates: start: 20030615
  5. FEXOFENADINE HYDROCHLORIDE [Concomitant]
     Indication: PRURITUS
     Route: 048
  6. CARVEDILOL [Concomitant]
     Indication: CARDIAC FAILURE
     Route: 048
  7. PROPRANOLOL [Concomitant]
     Indication: ISCHAEMIC HEART DISEASE PROPHYLAXIS
     Route: 048
  8. BACTRIM [Concomitant]
     Indication: INFECTION PROPHYLAXIS
     Route: 048
  9. OROXADIN [Concomitant]
     Indication: HYPERTRIGLYCERIDAEMIA
     Route: 048
  10. AZITROMYCIN [Concomitant]
     Indication: PROPHYLAXIS
     Route: 048
  11. VIMINOL HYDROXYBENZOATE [Concomitant]
     Indication: NEUROPATHIC PAIN
     Route: 048
  12. ASPIRIN [Concomitant]
     Indication: PROPHYLAXIS
     Route: 048
  13. FLUCONAZOLE [Concomitant]
     Indication: CANDIDIASIS
     Route: 048
  14. B-KOMPLEX ^LECIVA^ [Concomitant]
     Indication: MEDICAL DIET
     Route: 048
  15. POLIVITAMINE [Concomitant]
     Indication: MEDICAL DIET
     Route: 048
  16. CALCIUM GLUBIONATE [Concomitant]
     Indication: MEDICAL DIET
     Route: 048
  17. TYLEX [Concomitant]
     Indication: PAIN
     Dates: start: 20050419

REACTIONS (3)
  - JOINT ARTHROPLASTY [None]
  - MULTIPLE MYELOMA [None]
  - TUBERCULOSIS [None]
